FAERS Safety Report 25735488 (Version 1)
Quarter: 2025Q3

REPORT INFORMATION
  Report Type: Spontaneous
  Country: TW (occurrence: None)
  Receive Date: 20250828
  Receipt Date: 20250828
  Transmission Date: 20251020
  Serious: Yes (Other)
  Sender: ENCUBE ETHICALS PVT. LTD.
  Company Number: TW-Encube-002194

PATIENT
  Age: 83 Year
  Sex: Female

DRUGS (1)
  1. TACROLIMUS [Suspect]
     Active Substance: TACROLIMUS
     Indication: Prophylaxis against transplant rejection

REACTIONS (7)
  - Toxicity to various agents [Unknown]
  - Drug interaction [Unknown]
  - Overdose [Unknown]
  - Mental status changes [Unknown]
  - Tremor [Unknown]
  - Off label use [Unknown]
  - Acute kidney injury [Recovering/Resolving]
